FAERS Safety Report 12795038 (Version 3)
Quarter: 2016Q4

REPORT INFORMATION
  Report Type: Spontaneous
  Country: SE (occurrence: SE)
  Receive Date: 20160929
  Receipt Date: 20161204
  Transmission Date: 20170207
  Serious: Yes (Life-Threatening, Hospitalization, Other)
  Sender: FDA-Public Use
  Company Number: SE-GLAXOSMITHKLINE-SE2016GSK140251

PATIENT
  Sex: Female

DRUGS (7)
  1. OMEPRAZOL [Concomitant]
     Active Substance: OMEPRAZOLE
  2. PREDNISOLON [Concomitant]
     Active Substance: PREDNISOLONE
  3. CICLOSPORIN [Concomitant]
     Active Substance: CYCLOSPORINE
     Dosage: 50 MG, BID
  4. PLAQUENIL [Concomitant]
     Active Substance: HYDROXYCHLOROQUINE SULFATE
     Dosage: 200 MG, BID
  5. BENLYSTA [Suspect]
     Active Substance: BELIMUMAB
     Dosage: 2ND INFUSION
     Dates: start: 20160825
  6. IMUREL [Concomitant]
     Active Substance: AZATHIOPRINE SODIUM
     Dosage: 50 MG, BID
  7. BENLYSTA [Suspect]
     Active Substance: BELIMUMAB
     Indication: SYSTEMIC LUPUS ERYTHEMATOSUS
     Dosage: 600 MG, UNK
     Dates: start: 20160810

REACTIONS (9)
  - Congestive cardiomyopathy [Unknown]
  - C-reactive protein increased [Not Recovered/Not Resolved]
  - Cough [Unknown]
  - Cardiogenic shock [Unknown]
  - Fatigue [Not Recovered/Not Resolved]
  - Renal failure [Unknown]
  - Alanine aminotransferase [Not Recovered/Not Resolved]
  - Cardiac failure [Not Recovered/Not Resolved]
  - Dyspnoea [Not Recovered/Not Resolved]
